FAERS Safety Report 9682015 (Version 1)
Quarter: 2013Q4

REPORT INFORMATION
  Report Type: Spontaneous
  Country: IT (occurrence: IT)
  Receive Date: 20131111
  Receipt Date: 20131111
  Transmission Date: 20140711
  Serious: Yes (Hospitalization, Other)
  Sender: FDA-Public Use
  Company Number: IT-PFIZER INC-2013319957

PATIENT
  Age: 89 Year
  Sex: Male
  Weight: 75 kg

DRUGS (2)
  1. ZOLOFT [Suspect]
     Indication: DEPRESSION
     Dosage: 50 MG, TOTAL DOSAGE
     Route: 048
  2. SEROQUEL [Interacting]
     Indication: DEPRESSION
     Dosage: 12.5 MG IN THE MORNING AND 25MG IN THE EVENING
     Route: 048

REACTIONS (4)
  - Drug interaction [Recovering/Resolving]
  - Hypotension [Recovering/Resolving]
  - Sopor [Recovering/Resolving]
  - Sensory level abnormal [Recovering/Resolving]
